FAERS Safety Report 14742518 (Version 2)
Quarter: 2018Q2

REPORT INFORMATION
  Report Type: Spontaneous
  Country: PT (occurrence: PT)
  Receive Date: 20180410
  Receipt Date: 20180418
  Transmission Date: 20180711
  Serious: Yes (Other)
  Sender: FDA-Public Use
  Company Number: PT-LPDUSPRD-20180522

PATIENT
  Age: 43 Year
  Sex: Female
  Weight: 65 kg

DRUGS (2)
  1. VENOFER [Suspect]
     Active Substance: IRON SUCROSE
     Dosage: 200 MG, 1 IN 15 D
     Route: 042
     Dates: start: 20180309, end: 20180309
  2. MOLINAR [Concomitant]
     Dosage: 1 DOSAGE FORM(1 DF, 1 IN 1 M)
     Route: 048

REACTIONS (2)
  - Bronchospasm [Unknown]
  - Erythema [Unknown]

NARRATIVE: CASE EVENT DATE: 20180309
